FAERS Safety Report 15190680 (Version 1)
Quarter: 2018Q3

REPORT INFORMATION
  Report Type: Spontaneous
  Country: US (occurrence: US)
  Receive Date: 20180625
  Receipt Date: 20180625
  Transmission Date: 20181010
  Serious: No
  Sender: FDA-Public Use
  Company Number: None

PATIENT
  Age: 63 Year
  Sex: Male
  Weight: 75 kg

DRUGS (1)
  1. AXICABTAGENE CILOLGUCEL [Suspect]
     Active Substance: AXICABTAGENE CILOLEUCEL
     Indication: DIFFUSE LARGE B-CELL LYMPHOMA
     Dates: start: 20180424

REACTIONS (2)
  - Cytokine release syndrome [None]
  - Pancytopenia [None]
